APPROVED DRUG PRODUCT: AMPHETAMINE
Active Ingredient: AMPHETAMINE
Strength: EQ 9.4MG BASE
Dosage Form/Route: TABLET, ORALLY DISINTEGRATING, EXTENDED RELEASE;ORAL
Application: A209253 | Product #003 | TE Code: AB
Applicant: ACTAVIS LABORATORIES FL INC
Approved: Jun 22, 2023 | RLD: No | RS: No | Type: RX